FAERS Safety Report 20123465 (Version 2)
Quarter: 2021Q4

REPORT INFORMATION
  Report Type: Spontaneous
  Country: BR (occurrence: BR)
  Receive Date: 20211129
  Receipt Date: 20211215
  Transmission Date: 20220303
  Serious: Yes (Other)
  Sender: FDA-Public Use
  Company Number: BR-NOVOPROD-868088

PATIENT
  Age: 52 Year
  Sex: Male
  Weight: 96 kg

DRUGS (1)
  1. OZEMPIC [Suspect]
     Active Substance: SEMAGLUTIDE
     Indication: Weight control
     Dosage: 0.25 MG
     Route: 065
     Dates: end: 20211106

REACTIONS (6)
  - Facial bones fracture [Unknown]
  - Syncope [Recovered/Resolved]
  - Injury [Recovered/Resolved]
  - Tooth fracture [Recovered/Resolved]
  - Disorientation [Unknown]
  - Off label use [Unknown]

NARRATIVE: CASE EVENT DATE: 20211106
